FAERS Safety Report 25207929 (Version 1)
Quarter: 2025Q2

REPORT INFORMATION
  Report Type: Spontaneous
  Country: IT (occurrence: IT)
  Receive Date: 20250417
  Receipt Date: 20250417
  Transmission Date: 20250717
  Serious: Yes (Other)
  Sender: BIOGEN
  Company Number: IT-BIOGEN-2025BI01306860

PATIENT
  Age: 64 Year

DRUGS (1)
  1. TOFERSEN [Suspect]
     Active Substance: TOFERSEN
     Indication: Amyotrophic lateral sclerosis
     Route: 050
     Dates: start: 202112

REACTIONS (6)
  - Velopharyngeal incompetence [Unknown]
  - Motor dysfunction [Unknown]
  - Facial paralysis [Unknown]
  - Vocal cord paralysis [Unknown]
  - Vocal cord paresis [Unknown]
  - Mastication disorder [Unknown]

NARRATIVE: CASE EVENT DATE: 20241201
